FAERS Safety Report 8829719 (Version 1)
Quarter: 2012Q4

REPORT INFORMATION
  Report Type: Spontaneous
  Country: US (occurrence: None)
  Receive Date: 20121005
  Receipt Date: 20121005
  Transmission Date: 20130627
  Serious: Yes (Disabling, Other)
  Sender: FDA-Public Use
  Company Number: None

PATIENT
  Age: 35 Year
  Sex: Male

DRUGS (2)
  1. CITALOPRAM [Suspect]
     Dosage: 1 tablet daily po
     Route: 048
     Dates: start: 20120911, end: 20120922
  2. LORAZEPAM 0.5 MG [Suspect]
     Indication: ANXIETY
     Dosage: 1 tablet 3 times a day po
     Route: 048
     Dates: start: 20120914, end: 20120922

REACTIONS (3)
  - Memory impairment [None]
  - Flashback [None]
  - Pain [None]
